FAERS Safety Report 21476491 (Version 1)
Quarter: 2022Q4

REPORT INFORMATION
  Report Type: Report from Study
  Country: US (occurrence: US)
  Receive Date: 20221019
  Receipt Date: 20221019
  Transmission Date: 20230112
  Serious: No
  Sender: FDA-Public Use
  Company Number: US-ABBVIE-4147278

PATIENT
  Sex: Male

DRUGS (1)
  1. IMBRUVICA [Suspect]
     Active Substance: IBRUTINIB
     Indication: Chronic lymphocytic leukaemia
     Dosage: TIME INTERVAL: 0.33333333 DAYS
     Route: 048
     Dates: start: 20190101

REACTIONS (5)
  - Atrial fibrillation [Recovered/Resolved]
  - Infection susceptibility increased [Not Recovered/Not Resolved]
  - Hypertension [Unknown]
  - Onychoclasis [Not Recovered/Not Resolved]
  - Nausea [Recovered/Resolved]
